FAERS Safety Report 8027367-X (Version None)
Quarter: 2012Q1

REPORT INFORMATION
  Report Type: 
  Country: None (occurrence: None)
  Receive Date: 20120106
  Receipt Date: 20111228
  Transmission Date: 20120608
  Serious: Yes (Life-Threatening)
  Sender: FDA-Public Use
  Company Number: JP-ASTELLAS-2011JP002314

PATIENT
  Sex: Female
  Weight: 39.7 kg

DRUGS (13)
  1. PROGRAF [Suspect]
     Indication: RHEUMATOID ARTHRITIS
     Dosage: 2.5 MG, UID/QD
     Route: 048
     Dates: start: 20110125, end: 20110323
  2. OMEPRAZOLE [Concomitant]
     Indication: GASTROOESOPHAGEAL REFLUX DISEASE
     Dosage: 20 MG, UID/QD
     Route: 048
     Dates: start: 20110218
  3. PREDNISOLONE [Suspect]
     Indication: DERMATOMYOSITIS
     Dosage: 13.75 MG, BID
     Route: 048
     Dates: start: 20100331
  4. BONOTEO [Concomitant]
     Indication: OSTEOPOROSIS PROPHYLAXIS
     Dosage: 1 MG, UID/QD
     Route: 048
     Dates: start: 20110208, end: 20110323
  5. ITRACONAZOLE [Concomitant]
     Indication: INFECTION PROPHYLAXIS
     Dosage: 100 MG, UID/QD
     Route: 048
     Dates: start: 20110302, end: 20110328
  6. PROGRAF [Suspect]
     Indication: SCLERODERMA
  7. ANTEBATE [Concomitant]
     Indication: SCLERODERMA
     Dosage: UNK
     Route: 061
     Dates: start: 20110214
  8. AMLODIPINE [Concomitant]
     Dosage: 5 MG, UID/QD
     Route: 048
     Dates: start: 20110309
  9. PURSENNID [Concomitant]
     Indication: CONSTIPATION
     Dosage: 24 MG, UID/QD
     Route: 048
     Dates: start: 20101103
  10. PROCYLIN [Concomitant]
     Indication: SCLERODERMA
     Dosage: 20 UG, TID
     Route: 048
     Dates: start: 20110302, end: 20110328
  11. MOBIC [Concomitant]
     Indication: RHEUMATOID ARTHRITIS
     Dosage: 10 MG, UID/QD
     Route: 048
     Dates: start: 20110126, end: 20110415
  12. HIRUDOID [Concomitant]
     Indication: SCLERODERMA
     Dosage: UNK
     Route: 061
     Dates: start: 20110214
  13. AMLODIPINE [Concomitant]
     Indication: SCLERODERMA
     Dosage: 2.5 MG, UID/QD
     Route: 048
     Dates: start: 20110224, end: 20110308

REACTIONS (3)
  - THROMBOTIC THROMBOCYTOPENIC PURPURA [None]
  - POSTERIOR REVERSIBLE ENCEPHALOPATHY SYNDROME [None]
  - SCLERODERMA RENAL CRISIS [None]
